FAERS Safety Report 5992978-X (Version None)
Quarter: 2008Q4

REPORT INFORMATION
  Report Type: 
  Country: None (occurrence: None)
  Receive Date: 20081210
  Receipt Date: 20081210
  Transmission Date: 20090506
  Serious: No
  Sender: FDA-Public Use
  Company Number: None

PATIENT
  Age: 50 Year
  Sex: Female
  Weight: 58.9676 kg

DRUGS (2)
  1. GENERIC ESTRADIOL PATCHES 0.1MG / DAY VARIED [Suspect]
     Indication: HYSTERECTOMY
     Dosage: ONE PATCH WEEKLY TRANSDERMAL
     Route: 062
     Dates: start: 20060701, end: 20081209
  2. GENERIC ESTRADIOL PATCHES 0.1MG / DAY VARIED [Suspect]
     Indication: OESTROGEN REPLACEMENT THERAPY
     Dosage: ONE PATCH WEEKLY TRANSDERMAL
     Route: 062
     Dates: start: 20060701, end: 20081209

REACTIONS (5)
  - FRUSTRATION [None]
  - HORMONE LEVEL ABNORMAL [None]
  - PRODUCT QUALITY ISSUE [None]
  - UNDERDOSE [None]
  - URTICARIA [None]
